FAERS Safety Report 20157973 (Version 3)
Quarter: 2022Q1

REPORT INFORMATION
  Report Type: Spontaneous
  Country: US (occurrence: US)
  Receive Date: 20211207
  Receipt Date: 20220103
  Transmission Date: 20220423
  Serious: No
  Sender: FDA-Public Use
  Company Number: US-SA-SAC20211129001509

PATIENT
  Age: 21 Year
  Sex: Male

DRUGS (1)
  1. DUPIXENT [Suspect]
     Active Substance: DUPILUMAB
     Indication: Asthma
     Dosage: 300 MG, QOW
     Route: 058

REACTIONS (6)
  - Injection site pain [Unknown]
  - Device deployment issue [Unknown]
  - Product dose omission issue [Unknown]
  - Product preparation error [Unknown]
  - Oropharyngeal pain [Unknown]
  - Headache [Unknown]
